FAERS Safety Report 6930536-0 (Version None)
Quarter: 2010Q3

REPORT INFORMATION
  Report Type: 
  Country: None (occurrence: None)
  Receive Date: 20100818
  Receipt Date: 20100811
  Transmission Date: 20110219
  Serious: Yes (Death)
  Sender: FDA-Public Use
  Company Number: A0875180A

PATIENT
  Age: 80 Year
  Sex: Female

DRUGS (3)
  1. ADVAIR DISKUS 100/50 [Suspect]
     Indication: CHRONIC OBSTRUCTIVE PULMONARY DISEASE
     Dosage: 1PUFF TWICE PER DAY
     Route: 055
  2. THYROID MEDICATION [Concomitant]
  3. ANTI-CHOLESTEROL MEDICATION [Concomitant]

REACTIONS (5)
  - COUGH [None]
  - DEATH [None]
  - ILL-DEFINED DISORDER [None]
  - PNEUMONIA [None]
  - WHEEZING [None]
